FAERS Safety Report 18842367 (Version 5)
Quarter: 2021Q2

REPORT INFORMATION
  Report Type: Other
  Country: CA (occurrence: CA)
  Receive Date: 20210203
  Receipt Date: 20210518
  Transmission Date: 20210717
  Serious: Yes (Other)
  Sender: FDA-Public Use
  Company Number: CA-INTERCEPT-PM2021000026

PATIENT
  Age: 53 Year
  Sex: Female

DRUGS (11)
  1. LACTULOSE. [Concomitant]
     Active Substance: LACTULOSE
     Dosage: UNK, QD
  2. OCALIVA [Suspect]
     Active Substance: OBETICHOLIC ACID
     Dosage: 5 MILLIGRAM, 2X/WK
     Route: 048
     Dates: start: 20210113, end: 20210226
  3. UDCA [Concomitant]
     Active Substance: URSODIOL
     Dosage: 500 MILLIGRAM, QD
  4. OCALIVA [Suspect]
     Active Substance: OBETICHOLIC ACID
     Dosage: 5 MILLIGRAM, QW
     Route: 048
     Dates: start: 2021, end: 2021
  5. RIFAXIMIN. [Concomitant]
     Active Substance: RIFAXIMIN
     Dosage: UNK, QD
  6. OCALIVA [Suspect]
     Active Substance: OBETICHOLIC ACID
     Dosage: 10 MILLIGRAM, QW
     Route: 048
     Dates: start: 2021, end: 2021
  7. OCALIVA [Suspect]
     Active Substance: OBETICHOLIC ACID
     Dosage: 5 MILLIGRAM, QW
     Route: 048
     Dates: start: 2021, end: 2021
  8. OCALIVA [Suspect]
     Active Substance: OBETICHOLIC ACID
     Indication: PRIMARY BILIARY CHOLANGITIS
     Dosage: 5 MILLIGRAM, QW
     Route: 048
     Dates: start: 20210101, end: 202101
  9. NADOLOL. [Concomitant]
     Active Substance: NADOLOL
     Dosage: 40 MILLIGRAM, QD
  10. DEXILANT [Concomitant]
     Active Substance: DEXLANSOPRAZOLE
     Dosage: 60 MILLIGRAM, BID
  11. KINERET [Concomitant]
     Active Substance: ANAKINRA
     Dosage: 100 MILLILITER, BID
     Route: 058

REACTIONS (15)
  - Gastric antral vascular ectasia [Unknown]
  - Faeces discoloured [Recovered/Resolved]
  - Pruritus [Not Recovered/Not Resolved]
  - Epistaxis [Recovered/Resolved]
  - Haemoglobin decreased [Unknown]
  - Splenomegaly [Unknown]
  - Off label use [Recovered/Resolved]
  - Immune thrombocytopenia [Unknown]
  - Emotional distress [Unknown]
  - Unevaluable event [Unknown]
  - Asthenia [Unknown]
  - Taste disorder [Unknown]
  - Gastrointestinal haemorrhage [Recovered/Resolved]
  - Gingival bleeding [Recovered/Resolved]
  - Fatigue [Unknown]

NARRATIVE: CASE EVENT DATE: 2021
